FAERS Safety Report 14738050 (Version 2)
Quarter: 2018Q2

REPORT INFORMATION
  Report Type: Spontaneous
  Country: JP (occurrence: JP)
  Receive Date: 20180409
  Receipt Date: 20180419
  Transmission Date: 20180711
  Serious: Yes (Death, Other)
  Sender: FDA-Public Use
  Company Number: JP-PFIZER INC-2018140562

PATIENT
  Age: 64 Year
  Sex: Male

DRUGS (2)
  1. CARBOPLATIN. [Suspect]
     Active Substance: CARBOPLATIN
     Indication: NEOPLASM MALIGNANT
     Dosage: UNK, EVERY 3 WEEKS (AREA UNDER THE CURVE 5)
     Dates: start: 2017, end: 2017
  2. PACLITAXEL. [Suspect]
     Active Substance: PACLITAXEL
     Indication: NEOPLASM MALIGNANT
     Dosage: 200 MG/M2, EVERY 3 WEEKS
     Dates: start: 2017, end: 2017

REACTIONS (1)
  - Gastritis bacterial [Recovering/Resolving]

NARRATIVE: CASE EVENT DATE: 2017
